FAERS Safety Report 9708161 (Version 1)
Quarter: 2013Q4

REPORT INFORMATION
  Report Type: Spontaneous
  Country: US (occurrence: None)
  Receive Date: 20131122
  Receipt Date: 20131122
  Transmission Date: 20140711
  Serious: No
  Sender: FDA-Public Use
  Company Number: None

PATIENT
  Age: 56 Year
  Sex: Male
  Weight: 148 kg

DRUGS (2)
  1. CYTARABINE [Suspect]
     Dates: end: 20131028
  2. IDARUBICIN [Suspect]
     Dates: end: 20131028

REACTIONS (9)
  - Asthenia [None]
  - Diarrhoea [None]
  - Fall [None]
  - Faecal incontinence [None]
  - Tachycardia [None]
  - Dyspnoea [None]
  - Hyporesponsive to stimuli [None]
  - Atrial flutter [None]
  - Atrial fibrillation [None]
